FAERS Safety Report 21566530 (Version 1)
Quarter: 2022Q4

REPORT INFORMATION
  Report Type: Spontaneous
  Country: US (occurrence: US)
  Receive Date: 20221108
  Receipt Date: 20221108
  Transmission Date: 20230112
  Serious: Yes (Hospitalization)
  Sender: FDA-Public Use
  Company Number: US-INCYTE CORPORATION-2022IN010674

PATIENT

DRUGS (1)
  1. JAKAFI [Suspect]
     Active Substance: RUXOLITINIB
     Indication: Polycythaemia vera
     Dosage: 3 TABLETS (15 MG) ALTERNATING WITH 4 TABLETS (20 MG) BID (WITH OR WITHOUT FOOD)
     Route: 048
     Dates: start: 20220117

REACTIONS (1)
  - Joint injury [Not Recovered/Not Resolved]
